FAERS Safety Report 8900965 (Version 2)
Quarter: 2013Q1

REPORT INFORMATION
  Report Type: Spontaneous
  Country: US (occurrence: US)
  Receive Date: 20121109
  Receipt Date: 20130315
  Transmission Date: 20140127
  Serious: No
  Sender: FDA-Public Use
  Company Number: US-009507513-1211USA002411

PATIENT
  Age: 52 None
  Sex: Male
  Weight: 115.65 kg

DRUGS (8)
  1. VICTRELIS [Suspect]
     Indication: CHRONIC HEPATITIS C
     Dosage: 800 MG, TID
     Route: 048
     Dates: start: 20120830, end: 20121030
  2. RIBAVIRIN [Suspect]
     Indication: CHRONIC HEPATITIS C
     Dosage: 600 MG, BID
     Route: 048
     Dates: start: 20120726, end: 201210
  3. PEGASYS [Suspect]
     Indication: CHRONIC HEPATITIS C
     Dosage: 180 MICROGRAM/0.5 ML, QW
     Route: 058
     Dates: start: 20120726, end: 20121030
  4. GEMFIBROZIL [Concomitant]
     Dosage: 600 MG (1 TABLET), BID BEFORE MEALS
     Route: 048
  5. QVAR [Concomitant]
     Dosage: 1 DF, BID
     Route: 055
  6. PROAIR (ALBUTEROL SULFATE) [Concomitant]
     Dosage: 2 DF, Q4H IF NEEDED
     Route: 055
  7. HUMALOG [Concomitant]
     Dosage: 30 UNITS, BID
     Route: 058
  8. HUMULIN R [Concomitant]
     Dosage: 100 UNIT/ML

REACTIONS (16)
  - Viral load [Unknown]
  - Rash [Recovering/Resolving]
  - Drug ineffective [Unknown]
  - Fatigue [Recovering/Resolving]
  - Initial insomnia [Recovering/Resolving]
  - Nausea [Unknown]
  - Dry skin [Recovering/Resolving]
  - Cough [Not Recovered/Not Resolved]
  - Dyspnoea [Not Recovered/Not Resolved]
  - Gastrointestinal motility disorder [Unknown]
  - Abdominal discomfort [Unknown]
  - Asthma [Unknown]
  - Breath sounds abnormal [Unknown]
  - Fibrosis [Unknown]
  - Hypoglycaemia [Unknown]
  - Weight increased [Unknown]
